FAERS Safety Report 5368249-1 (Version None)
Quarter: 2007Q2

REPORT INFORMATION
  Report Type: 
  Country: None (occurrence: None)
  Receive Date: 20070625
  Receipt Date: 20070619
  Transmission Date: 20071010
  Serious: Yes (Death, Life-Threatening, Hospitalization, Other)
  Sender: FDA-Public Use
  Company Number: PHHO2007US02498

PATIENT
  Age: 56 Year
  Sex: Male
  Weight: 78.9 kg

DRUGS (8)
  1. MYFORTIC [Suspect]
     Indication: RENAL TRANSPLANT
     Dosage: 720 MG, BID
     Route: 048
     Dates: start: 20051017, end: 20070320
  2. CELLCEPT [Suspect]
     Indication: RENAL TRANSPLANT
     Dosage: 1000 MG, BID
  3. RAPAMUNE [Suspect]
     Indication: RENAL TRANSPLANT
     Dosage: 3 MG / DAILY
     Route: 065
  4. RAPAMUNE [Suspect]
     Dosage: 1 MG DAILY
     Route: 065
  5. NEORAL [Suspect]
     Indication: RENAL TRANSPLANT
     Dosage: 100 MG, BID
  6. RADIOTHERAPY [Suspect]
     Indication: SQUAMOUS CELL CARCINOMA
  7. VALTREX [Concomitant]
  8. CHEMOTHERAPEUTICS,OTHER [Suspect]
     Indication: SQUAMOUS CELL CARCINOMA

REACTIONS (16)
  - ABSCESS NECK [None]
  - CHOKING SENSATION [None]
  - CYTOMEGALOVIRUS OESOPHAGITIS [None]
  - DYSPHAGIA [None]
  - DYSPHONIA [None]
  - DYSPNOEA [None]
  - HERPES OESOPHAGITIS [None]
  - LARYNGEAL STENOSIS [None]
  - LUNG SQUAMOUS CELL CARCINOMA STAGE UNSPECIFIED [None]
  - NAUSEA [None]
  - NECK MASS [None]
  - ODYNOPHAGIA [None]
  - OESOPHAGEAL ULCER [None]
  - ORAL CANDIDIASIS [None]
  - SQUAMOUS CELL CARCINOMA [None]
  - TACHYCARDIA [None]
